FAERS Safety Report 4700208-1 (Version None)
Quarter: 2005Q2

REPORT INFORMATION
  Report Type: 
  Country: None (occurrence: None)
  Receive Date: 20050627
  Receipt Date: 20050223
  Transmission Date: 20051028
  Serious: Yes (Death)
  Sender: FDA-Public Use
  Company Number: PHBS2005JP02784

PATIENT
  Age: 60 Year
  Sex: Female

DRUGS (4)
  1. CEFZON [Concomitant]
     Indication: TOOTHACHE
     Dosage: 300 MG/DAY
     Route: 048
     Dates: start: 20050131, end: 20050218
  2. CEFZON [Concomitant]
     Route: 048
     Dates: start: 20050218, end: 20050218
  3. VOLTAREN [Suspect]
     Indication: TOOTHACHE
     Dosage: 75 MG/DAY
     Route: 048
     Dates: start: 20050131, end: 20050202
  4. VOLTAREN [Suspect]
     Dosage: 75 MG/DAY
     Route: 048
     Dates: start: 20050218, end: 20050218

REACTIONS (1)
  - ANAPHYLACTIC SHOCK [None]
